FAERS Safety Report 5371428-0 (Version None)
Quarter: 2007Q2

REPORT INFORMATION
  Report Type: 
  Country: None (occurrence: None)
  Receive Date: 20070622
  Receipt Date: 20070608
  Transmission Date: 20071010
  Serious: Yes (Other)
  Sender: FDA-Public Use
  Company Number: DSA_30093_2007

PATIENT
  Sex: Female

DRUGS (7)
  1. VASOTEC [Suspect]
     Dosage: DF
  2. PROCRIT [Suspect]
     Indication: ANAEMIA
     Dosage: DF
  3. LASIX [Suspect]
     Indication: OEDEMA
     Dosage: DF
  4. LISINOPRIL [Suspect]
     Dosage: DF
  5. IRON [Concomitant]
  6. VITAMIN B12 NOS [Concomitant]
  7. GLUCOPHAGE [Concomitant]

REACTIONS (6)
  - DYSPNOEA [None]
  - ERUCTATION [None]
  - HAEMOGLOBIN DECREASED [None]
  - RETCHING [None]
  - SWELLING FACE [None]
  - VOMITING [None]
